FAERS Safety Report 5510087-0 (Version None)
Quarter: 2007Q4

REPORT INFORMATION
  Report Type: 
  Country: None (occurrence: None)
  Receive Date: 20071108
  Receipt Date: 20070605
  Transmission Date: 20080405
  Serious: No
  Sender: FDA-Public Use
  Company Number: US-ABBOTT-07P-163-0371672-00

PATIENT
  Sex: Female
  Weight: 84.898 kg

DRUGS (17)
  1. TARKA [Suspect]
     Indication: HYPERTENSION
     Route: 048
     Dates: start: 20050101, end: 20070516
  2. HYDROCODONE BITARTRATE [Concomitant]
     Indication: PAIN
     Route: 048
     Dates: start: 19970101
  3. HYDROCODONE BITARTRATE [Concomitant]
     Indication: INTERVERTEBRAL DISC DEGENERATION
  4. POTASSIUM CHLORIDE [Concomitant]
     Indication: HYPERTENSION
     Route: 048
     Dates: start: 19950101
  5. DULOXETINE HYDROCHLORIDE [Concomitant]
     Indication: PAIN
     Route: 048
     Dates: start: 20070101
  6. FUROSEMIDE [Concomitant]
     Indication: OEDEMA PERIPHERAL
     Route: 048
     Dates: start: 19950101
  7. FUROSEMIDE [Concomitant]
     Indication: HYPERTENSION
  8. LORAZEPAM [Concomitant]
     Indication: ANXIETY
     Route: 048
     Dates: start: 19870101
  9. AMITRIPTYLINE HCL [Concomitant]
     Indication: INSOMNIA
     Route: 048
     Dates: start: 19970101
  10. TRAMADOL HYDROCHLORIDE [Concomitant]
     Indication: PAIN
     Route: 048
     Dates: start: 19970101
  11. PHENERGAN HCL [Concomitant]
     Indication: STOMACH DISCOMFORT
     Route: 048
     Dates: start: 19970101
  12. PHENERGAN HCL [Concomitant]
     Indication: PAIN
  13. LUNESTA [Concomitant]
     Indication: INSOMNIA
     Route: 048
     Dates: start: 20061201
  14. FEXOFENADINE [Concomitant]
     Indication: HYPERSENSITIVITY
     Dosage: 180
     Route: 048
     Dates: start: 19920101
  15. ACETYLSALICYLIC ACID SRT [Concomitant]
     Indication: ANTICOAGULANT THERAPY
     Route: 048
     Dates: start: 19850101
  16. ACETYLSALICYLIC ACID SRT [Concomitant]
     Indication: HYPERTENSION
  17. TEKTURNA [Concomitant]
     Indication: HYPERTENSION
     Dates: start: 20070516

REACTIONS (2)
  - GAIT DISTURBANCE [None]
  - MUSCULAR WEAKNESS [None]
